FAERS Safety Report 25153496 (Version 1)
Quarter: 2025Q2

REPORT INFORMATION
  Report Type: Spontaneous
  Country: KR (occurrence: KR)
  Receive Date: 20250403
  Receipt Date: 20250403
  Transmission Date: 20250716
  Serious: Yes (Other)
  Sender: ROCHE
  Company Number: KR-ROCHE-10000246206

PATIENT
  Age: 62 Year
  Sex: Male

DRUGS (3)
  1. AVASTIN [Suspect]
     Active Substance: BEVACIZUMAB
     Indication: Lung neoplasm malignant
     Route: 065
     Dates: start: 20230828, end: 20230828
  2. OXALIPLATIN [Suspect]
     Active Substance: OXALIPLATIN
     Indication: Lung neoplasm malignant
     Route: 065
     Dates: start: 20230828, end: 20230828
  3. FLUOROURACIL [Suspect]
     Active Substance: FLUOROURACIL
     Indication: Lung neoplasm malignant
     Dosage: LATER DOSE: 500 MG AND 193 MG
     Route: 065
     Dates: start: 20230828, end: 20230828

REACTIONS (1)
  - Platelet count decreased [Not Recovered/Not Resolved]

NARRATIVE: CASE EVENT DATE: 20230911
